FAERS Safety Report 9578072 (Version 1)
Quarter: 2013Q4

REPORT INFORMATION
  Report Type: Spontaneous
  Country: US (occurrence: US)
  Receive Date: 20131001
  Receipt Date: 20131001
  Transmission Date: 20140711
  Serious: No
  Sender: FDA-Public Use
  Company Number: US-AMGEN-USASP2013011676

PATIENT
  Age: 45 Year
  Sex: Male
  Weight: 92.97 kg

DRUGS (4)
  1. ENBREL [Suspect]
     Indication: PRODUCT USED FOR UNKNOWN INDICATION
     Dosage: 50 MG, QWK
     Route: 058
  2. TRAMADOL HCL [Concomitant]
     Dosage: 50 MG, UNK
  3. DICLOFENAC [Concomitant]
     Dosage: 50 MG, UNK
  4. MULTICAPS [Concomitant]
     Dosage: UNK

REACTIONS (1)
  - Oedema peripheral [Unknown]
